FAERS Safety Report 5050099-7 (Version None)
Quarter: 2006Q3

REPORT INFORMATION
  Report Type: 
  Country: None (occurrence: None)
  Receive Date: 20060706
  Receipt Date: 20060626
  Transmission Date: 20061208
  Serious: Yes (Other)
  Sender: FDA-Public Use
  Company Number: 225424

PATIENT
  Age: 51 Year
  Sex: Female
  Weight: 106.6 kg

DRUGS (6)
  1. NUTROPIN AQ                         (SOMATROPIN) [Suspect]
     Indication: EMPTY SELLA SYNDROME
     Dosage: 0.4 MG, 7/WEEK, SUBCUTANEOUS
     Route: 058
     Dates: start: 20041115
  2. ACTONEL [Concomitant]
  3. COREG [Concomitant]
  4. DHEA                           (DEHYDROEPIANDROSTERONE) [Concomitant]
  5. EFFEXOR [Concomitant]
  6. MIACALCIN [Concomitant]

REACTIONS (2)
  - DIABETES MELLITUS [None]
  - GLYCOSYLATED HAEMOGLOBIN INCREASED [None]
